FAERS Safety Report 20311141 (Version 2)
Quarter: 2022Q1

REPORT INFORMATION
  Report Type: Spontaneous
  Country: PL (occurrence: PL)
  Receive Date: 20220107
  Receipt Date: 20220220
  Transmission Date: 20220424
  Serious: Yes (Hospitalization, Other)
  Sender: FDA-Public Use
  Company Number: PL-EMA-DD-20211228-singh_p11-131659

PATIENT
  Age: 57 Year

DRUGS (2)
  1. HEPARIN [Suspect]
     Active Substance: HEPARIN SODIUM
     Indication: Deep vein thrombosis
  2. ENOXAPARIN SODIUM [Concomitant]
     Active Substance: ENOXAPARIN SODIUM
     Indication: Deep vein thrombosis
     Dosage: THE PATIENT WAS GIVEN A THERAPEUTIC DOSE OF ENOXAPARINE.

REACTIONS (3)
  - Haematoma [Recovering/Resolving]
  - Haemorrhage [Unknown]
  - Oedema peripheral [Unknown]
